FAERS Safety Report 25261800 (Version 1)
Quarter: 2025Q2

REPORT INFORMATION
  Report Type: Spontaneous
  Country: US (occurrence: US)
  Receive Date: 20250502
  Receipt Date: 20250502
  Transmission Date: 20250716
  Serious: No
  Sender: AMGEN
  Company Number: US-AMGEN-USASP2025084528

PATIENT
  Age: 57 Year
  Sex: Female

DRUGS (1)
  1. VECTIBIX [Suspect]
     Active Substance: PANITUMUMAB
     Indication: Colon cancer
     Dosage: 356 MILLIGRAM, Q2WK
     Route: 065

REACTIONS (1)
  - Refusal of treatment by patient [Unknown]

NARRATIVE: CASE EVENT DATE: 20250314
